FAERS Safety Report 7198541-X (Version None)
Quarter: 2010Q4

REPORT INFORMATION
  Report Type: 
  Country: None (occurrence: None)
  Receive Date: 20101227
  Receipt Date: 20101213
  Transmission Date: 20110411
  Serious: Yes (Hospitalization, Other)
  Sender: FDA-Public Use
  Company Number: US-CELGENEUS-163-21880-08060364

PATIENT
  Sex: Male
  Weight: 105.7 kg

DRUGS (9)
  1. REVLIMID [Suspect]
     Indication: MULTIPLE MYELOMA
     Route: 048
     Dates: start: 20080609, end: 20080624
  2. REVLIMID [Suspect]
     Route: 048
     Dates: start: 20080101, end: 20080629
  3. DEXAMETHASONE [Suspect]
     Indication: MULTIPLE MYELOMA
     Route: 065
     Dates: end: 20080629
  4. DOXIL [Suspect]
     Indication: MULTIPLE MYELOMA
     Route: 065
     Dates: end: 20080629
  5. COUMADIN [Concomitant]
     Route: 065
  6. NORVASC [Concomitant]
     Route: 065
  7. DIOVAN [Concomitant]
     Route: 065
  8. INDAPAMIDE [Concomitant]
     Route: 065
  9. MULTI-VITAMINS [Concomitant]
     Route: 065

REACTIONS (4)
  - ASTHMA [None]
  - COUGH [None]
  - HYPOKALAEMIA [None]
  - PNEUMOCYSTIS JIROVECI PNEUMONIA [None]
